FAERS Safety Report 13936363 (Version 1)
Quarter: 2017Q3

REPORT INFORMATION
  Report Type: Spontaneous
  Country: US (occurrence: None)
  Receive Date: 20170905
  Receipt Date: 20170905
  Transmission Date: 20171127
  Serious: Yes (Hospitalization)
  Sender: FDA-Public Use
  Company Number: None

PATIENT
  Age: 67 Year
  Sex: Male

DRUGS (1)
  1. GABAPENTIN. [Suspect]
     Active Substance: GABAPENTIN
     Indication: PAIN
     Route: 048
     Dates: start: 20170717, end: 20170901

REACTIONS (5)
  - Injury [None]
  - Intentional product use issue [None]
  - Myoclonus [None]
  - Fall [None]
  - Joint injury [None]

NARRATIVE: CASE EVENT DATE: 20170831
